FAERS Safety Report 6611868-2 (Version None)
Quarter: 2010Q1

REPORT INFORMATION
  Report Type: 
  Country: None (occurrence: None)
  Receive Date: 20100303
  Receipt Date: 20100225
  Transmission Date: 20100710
  Serious: Yes (Other)
  Sender: FDA-Public Use
  Company Number: IT-PFIZER INC-2010020204

PATIENT
  Age: 23 Year
  Sex: Male

DRUGS (5)
  1. HYDROXYZINE HCL [Suspect]
  2. CETIRIZINE [Suspect]
  3. DESLORATADINE [Suspect]
  4. FEXOFENADINE [Suspect]
     Dosage: UNK
  5. EBASTINE [Suspect]

REACTIONS (2)
  - DRUG INEFFECTIVE [None]
  - URTICARIA CHRONIC [None]
